FAERS Safety Report 8770297 (Version 1)
Quarter: 2012Q4

REPORT INFORMATION
  Report Type: Report from Study
  Country: BR (occurrence: BR)
  Receive Date: 20120904
  Receipt Date: 20120904
  Transmission Date: 20130627
  Serious: Yes (Hospitalization, Other)
  Sender: FDA-Public Use
  Company Number: BR-ROCHE-743464

PATIENT
  Age: 24 Year
  Sex: Female
  Weight: 68 kg

DRUGS (8)
  1. MABTHERA [Suspect]
     Indication: RHEUMATOID ARTHRITIS
     Route: 065
     Dates: start: 20101027, end: 20101112
  2. PREDNISONE [Concomitant]
     Route: 065
  3. HYDROXYCHLOROQUINE [Concomitant]
     Route: 065
  4. FUROSEMIDE [Concomitant]
     Route: 065
  5. MAREVAN [Concomitant]
     Route: 065
  6. GABAPENTIN [Concomitant]
  7. OMEPRAZOLE [Concomitant]
     Route: 065
  8. CALCIUM SUPPLEMENT [Concomitant]
     Dosage: DRUG NAME: CALCIO D
     Route: 065

REACTIONS (4)
  - Thrombocytopenia [Not Recovered/Not Resolved]
  - Bacterial infection [Unknown]
  - Diarrhoea [Not Recovered/Not Resolved]
  - Pain [Unknown]
